FAERS Safety Report 19428259 (Version 1)
Quarter: 2021Q2

REPORT INFORMATION
  Report Type: Spontaneous
  Country: US (occurrence: US)
  Receive Date: 20210617
  Receipt Date: 20210617
  Transmission Date: 20210717
  Serious: No
  Sender: FDA-Public Use
  Company Number: None

PATIENT
  Sex: Female

DRUGS (15)
  1. LEVO T 25 MG TAB [Concomitant]
  2. CENTRUM [Concomitant]
     Active Substance: VITAMINS
  3. PANTOPRAZOLE 40 MG TAB [Concomitant]
  4. MIRTAZAPINE 15 MG TAB [Concomitant]
  5. CALCIUM PLUS D [Concomitant]
     Active Substance: CALCIUM\VITAMIN D
  6. ZOFRAN 4 MG TAB [Concomitant]
  7. AVASTIN 400 [Concomitant]
  8. FERROUS SULFATE 325 MG TAB [Concomitant]
  9. PRESERVISION AREDS 2 [Concomitant]
     Active Substance: MINERALS\VITAMINS
  10. AMLODIPINE [Concomitant]
     Active Substance: AMLODIPINE BESYLATE
  11. MIRALAX [Concomitant]
     Active Substance: POLYETHYLENE GLYCOL 3350
  12. VITAMIN B COMPLEX [Concomitant]
     Active Substance: CYANOCOBALAMIN\DEXPANTHENOL\NIACINAMIDE\PYRIDOXINE HYDROCHLORIDE\RIBOFLAVIN 5^-PHOSPHATE SODIUM\THIAMINE HYDROCHLORIDE\VITAMIN B COMPLEX
  13. TEMOZOLOMIDE 100 MG CAPSULE [Suspect]
     Active Substance: TEMOZOLOMIDE
     Indication: RETROPERITONEAL CANCER
     Route: 048
  14. ASPIRIN 81 MG TAB [Concomitant]
  15. ALIGN [Concomitant]
     Active Substance: BIFIDOBACTERIUM LONGUM SUBSP. INFANTIS

REACTIONS (2)
  - Pulmonary mass [None]
  - Therapy interrupted [None]
